FAERS Safety Report 24756581 (Version 1)
Quarter: 2024Q4

REPORT INFORMATION
  Report Type: Spontaneous
  Country: IN (occurrence: IN)
  Receive Date: 20241220
  Receipt Date: 20241220
  Transmission Date: 20250115
  Serious: Yes (Hospitalization, Other)
  Sender: AVYXA HOLDINGS, LLC
  Company Number: IN-AVYXA HOLDINGS, LLC-2024AVY000017

PATIENT
  Age: 45 Year
  Sex: Male

DRUGS (6)
  1. PALONOSETRON HYDROCHLORIDE [Suspect]
     Active Substance: PALONOSETRON HYDROCHLORIDE
     Indication: Prophylaxis of nausea and vomiting
     Dosage: 0.25 MG IV STAT ON DAY 1;
     Route: 042
  2. ETOPOSIDE [Concomitant]
     Active Substance: ETOPOSIDE
     Indication: Lung neoplasm malignant
     Dosage: 165 MG IN 500 ML NS IV OVER THREE HOURS
     Route: 042
  3. ETOPOSIDE [Concomitant]
     Active Substance: ETOPOSIDE
     Dosage: 170 MG IN 500 ML NS IV OVER THREE HOURS
     Route: 042
  4. CISPLATIN [Concomitant]
     Active Substance: CISPLATIN
     Indication: Lung neoplasm malignant
     Dosage: 55 MG IN 500 ML NS IV OVER THREE HOURS
     Route: 042
  5. CISPLATIN [Concomitant]
     Active Substance: CISPLATIN
     Dosage: 56 MG IN 500 ML NS IV OVER THREE HOURS
     Route: 042
  6. DEXAMETHASONE [Concomitant]
     Active Substance: DEXAMETHASONE
     Indication: Premedication
     Dosage: 8 MG IV STAT
     Route: 042

REACTIONS (1)
  - Ventricular tachycardia [Recovered/Resolved]
